FAERS Safety Report 7031032-5 (Version None)
Quarter: 2010Q4

REPORT INFORMATION
  Report Type: 
  Country: None (occurrence: None)
  Receive Date: 20101006
  Receipt Date: 20100924
  Transmission Date: 20110411
  Serious: Yes (Other)
  Sender: FDA-Public Use
  Company Number: JP-PFIZER INC-2010103646

PATIENT
  Age: 87 Year
  Sex: Female
  Weight: 38 kg

DRUGS (8)
  1. GABAPEN [Suspect]
     Indication: CHEST PAIN
     Dosage: 300 MG DAILY
     Route: 048
     Dates: start: 20090930, end: 20091001
  2. GABAPEN [Suspect]
     Dosage: UNK
     Route: 048
     Dates: start: 20091002, end: 20091013
  3. AMITRIPTYLINE HCL [Concomitant]
     Dosage: UNK
  4. CONSTAN [Concomitant]
  5. DEPAS [Concomitant]
  6. DEPAKENE [Concomitant]
     Indication: ANALGESIC THERAPY
     Dosage: 200 MG, 1X/DAY
     Route: 048
     Dates: start: 20090907, end: 20090929
  7. MYSLEE [Concomitant]
     Indication: INSOMNIA
     Dosage: 5 MG, 1X/DAY
     Route: 048
     Dates: start: 20090907, end: 20090929
  8. CONTOMIN [Concomitant]

REACTIONS (3)
  - DELIRIUM [None]
  - OVERDOSE [None]
  - SOMNOLENCE [None]
